FAERS Safety Report 17155750 (Version 1)
Quarter: 2019Q4

REPORT INFORMATION
  Report Type: Spontaneous
  Country: US (occurrence: US)
  Receive Date: 20191215
  Receipt Date: 20191215
  Transmission Date: 20200122
  Serious: Yes (Hospitalization, Other)
  Sender: FDA-Public Use
  Company Number: US-BRISTOL-MYERS SQUIBB COMPANY-BMS-2019-119413

PATIENT
  Sex: Female
  Weight: 79.37 kg

DRUGS (1)
  1. COUMADIN [Suspect]
     Active Substance: WARFARIN SODIUM
     Indication: THROMBOSIS
     Dosage: 5 MILLIGRAM, QD
     Route: 065

REACTIONS (2)
  - Pulmonary thrombosis [Unknown]
  - International normalised ratio fluctuation [Unknown]
